FAERS Safety Report 10591796 (Version 2)
Quarter: 2014Q4

REPORT INFORMATION
  Report Type: Spontaneous
  Country: JP (occurrence: JP)
  Receive Date: 20141118
  Receipt Date: 20141121
  Transmission Date: 20150529
  Serious: Yes (Other)
  Sender: FDA-Public Use
  Company Number: JP-ROCHE-1492517

PATIENT
  Age: 40 Year
  Sex: Male

DRUGS (2)
  1. COPEGUS [Suspect]
     Active Substance: RIBAVIRIN
     Indication: CHRONIC HEPATITIS C
     Dosage: DOSAGE IS UNCERTAIN.
     Route: 048
  2. PEGASYS [Suspect]
     Active Substance: PEGINTERFERON ALFA-2A
     Indication: CHRONIC HEPATITIS C
     Dosage: DOSAGE IS UNCERTAIN.
     Route: 058

REACTIONS (1)
  - Diabetic ketoacidosis [Recovered/Resolved]
